FAERS Safety Report 23339606 (Version 1)
Quarter: 2023Q4

REPORT INFORMATION
  Report Type: Spontaneous
  Country: CH (occurrence: CH)
  Receive Date: 20231226
  Receipt Date: 20231226
  Transmission Date: 20240109
  Serious: Yes (Hospitalization)
  Sender: FDA-Public Use
  Company Number: CH-OPKO PHARMACEUTICALS, LLC.-2023OPK00124

PATIENT
  Sex: Male

DRUGS (1)
  1. RAYALDEE [Suspect]
     Active Substance: CALCIFEDIOL
     Indication: Product used for unknown indication
     Dosage: 60 MCG, QD
     Route: 048

REACTIONS (1)
  - Hypercalcaemia [Unknown]
